FAERS Safety Report 6886889-5 (Version None)
Quarter: 2010Q3

REPORT INFORMATION
  Report Type: 
  Country: None (occurrence: None)
  Receive Date: 20100730
  Receipt Date: 20100707
  Transmission Date: 20110219
  Serious: Yes (Hospitalization)
  Sender: FDA-Public Use
  Company Number: US-BAYER-201031654GPV

PATIENT
  Age: 56 Year
  Sex: Male
  Weight: 109 kg

DRUGS (4)
  1. NEXAVAR [Suspect]
     Indication: HEPATIC NEOPLASM MALIGNANT
     Dosage: TOTAL DAILY DOSE: 800 MG
     Route: 048
     Dates: start: 20100208
  2. CRAD001O VS PLACEBO [Suspect]
     Indication: HEPATIC NEOPLASM MALIGNANT
     Dosage: TOTAL DAILY DOSE: 2.5 MG
     Dates: start: 20100208
  3. OXYCONTIN [Concomitant]
  4. DOCUSATE SODIUM [Concomitant]

REACTIONS (4)
  - ABDOMINAL PAIN [None]
  - INTESTINAL DILATATION [None]
  - SMALL INTESTINAL OBSTRUCTION [None]
  - VOMITING [None]
